FAERS Safety Report 13733963 (Version 1)
Quarter: 2017Q3

REPORT INFORMATION
  Report Type: Spontaneous
  Country: US (occurrence: US)
  Receive Date: 20170707
  Receipt Date: 20170707
  Transmission Date: 20171127
  Serious: Yes (Other)
  Sender: FDA-Public Use
  Company Number: US-TEVA-785873USA

PATIENT
  Age: 5 Year

DRUGS (3)
  1. ALL-TRANS RETINOID ACID [Suspect]
     Active Substance: TRETINOIN
     Indication: ACUTE PROMYELOCYTIC LEUKAEMIA
     Route: 065
  2. ARSENIC TRIOXIDE [Suspect]
     Active Substance: ARSENIC TRIOXIDE
     Indication: ACUTE PROMYELOCYTIC LEUKAEMIA
     Dosage: DAY 11
     Route: 037
  3. CYTARABINE. [Suspect]
     Active Substance: CYTARABINE
     Route: 065

REACTIONS (4)
  - Hyperleukocytosis [Unknown]
  - Osteonecrosis [Unknown]
  - Seizure [Unknown]
  - Posterior reversible encephalopathy syndrome [Unknown]
